FAERS Safety Report 4579960-4 (Version None)
Quarter: 2005Q1

REPORT INFORMATION
  Report Type: 
  Country: None (occurrence: None)
  Receive Date: 20050214
  Receipt Date: 20050203
  Transmission Date: 20050727
  Serious: Yes (Death, Hospitalization, Other)
  Sender: FDA-Public Use
  Company Number: GB-BRISTOL-MYERS SQUIBB COMPANY-12853404

PATIENT
  Age: 75 Year
  Sex: Male

DRUGS (5)
  1. CYCLOPHOSPHAMIDE [Suspect]
     Route: 042
     Dates: start: 20040825
  2. DOXORUBICIN HCL [Suspect]
     Route: 042
     Dates: start: 20040825
  3. MABTHERA [Suspect]
     Route: 042
     Dates: start: 20040825
  4. VINCRISTINE [Suspect]
     Route: 042
     Dates: start: 20040825
  5. PREDNISOLONE [Concomitant]

REACTIONS (7)
  - ANAEMIA [None]
  - ASTHENIA [None]
  - BLOOD ALBUMIN INCREASED [None]
  - LUNG CREPITATION [None]
  - MALAISE [None]
  - NEUTROPENIC SEPSIS [None]
  - OEDEMA [None]
